FAERS Safety Report 16615255 (Version 2)
Quarter: 2019Q3

REPORT INFORMATION
  Report Type: Spontaneous
  Country: US (occurrence: US)
  Receive Date: 20190723
  Receipt Date: 20190827
  Transmission Date: 20191004
  Serious: Yes (Hospitalization, Other)
  Sender: FDA-Public Use
  Company Number: US-GLAXOSMITHKLINE-US2019129946

PATIENT
  Sex: Female

DRUGS (3)
  1. COREG [Suspect]
     Active Substance: CARVEDILOL
     Indication: CARDIAC FAILURE CONGESTIVE
     Dosage: 25 MG, 1D
     Route: 048
     Dates: start: 1996
  2. COREG [Suspect]
     Active Substance: CARVEDILOL
     Dosage: 12.5 MG, 1D
     Route: 048
     Dates: start: 1997
  3. CARVEDILOL PHOSPHATE. [Suspect]
     Active Substance: CARVEDILOL PHOSPHATE
     Indication: CARDIAC FAILURE CONGESTIVE
     Dosage: UNK
     Route: 065

REACTIONS (7)
  - Weight increased [Unknown]
  - Loss of consciousness [Unknown]
  - Condition aggravated [Unknown]
  - Cardiac valve disease [Unknown]
  - Malaise [Unknown]
  - Underdose [Unknown]
  - Heart rate decreased [Unknown]
